FAERS Safety Report 5246603-6 (Version None)
Quarter: 2007Q1

REPORT INFORMATION
  Report Type: 
  Country: None (occurrence: None)
  Receive Date: 20070222
  Receipt Date: 20070222
  Transmission Date: 20070707
  Serious: Yes (Hospitalization)
  Sender: FDA-Public Use
  Company Number: None

PATIENT
  Sex: Female
  Weight: 63.9572 kg

DRUGS (2)
  1. BEVACIZUMAB [Suspect]
     Indication: COLON CANCER METASTATIC
     Dosage: 5MG/KG  Q 2 WKS  IV DRIP
     Route: 041
     Dates: start: 20070109, end: 20070124
  2. CAPECITABINE [Suspect]
     Indication: COLON CANCER METASTATIC
     Dosage: 1500MG/M2 BID  X7 DAYS Q 2 WKS  PO
     Route: 048
     Dates: start: 20070109, end: 20070131

REACTIONS (6)
  - DISEASE PROGRESSION [None]
  - DYSPNOEA [None]
  - JAUNDICE [None]
  - METASTASES TO LIVER [None]
  - PAIN [None]
  - PERITONEAL CARCINOMA [None]
